FAERS Safety Report 17915849 (Version 1)
Quarter: 2020Q2

REPORT INFORMATION
  Report Type: Report from Study
  Country: JP (occurrence: JP)
  Receive Date: 20200619
  Receipt Date: 20200619
  Transmission Date: 20200714
  Serious: Yes (Death, Hospitalization, Disabling, Other)
  Sender: FDA-Public Use
  Company Number: PHHY2011JP127195

PATIENT
  Age: 77 Year
  Sex: Female
  Weight: 46 kg

DRUGS (13)
  1. SYMMETREL [Concomitant]
     Active Substance: AMANTADINE HYDROCHLORIDE
     Indication: PRODUCT USED FOR UNKNOWN INDICATION
     Dosage: 150 MG,
     Route: 048
  2. REVOLADE TAB [Suspect]
     Active Substance: ELTROMBOPAG
     Indication: IMMUNE THROMBOCYTOPENIA
     Dosage: 12.5 MG,
     Route: 048
     Dates: start: 20110609, end: 20110615
  3. REVOLADE TAB [Suspect]
     Active Substance: ELTROMBOPAG
     Dosage: 25 MG,
     Route: 048
     Dates: start: 20110616, end: 20110622
  4. DALACIN-S [Concomitant]
     Active Substance: CLINDAMYCIN
     Indication: PRODUCT USED FOR UNKNOWN INDICATION
     Dosage: 1200 MG,
     Route: 051
     Dates: start: 20110602, end: 20110613
  5. PREDONINE [Suspect]
     Active Substance: PREDNISOLONE
     Indication: IMMUNE THROMBOCYTOPENIA
     Dosage: 40 MG,
     Route: 048
     Dates: start: 20110630
  6. MICARDIS [Concomitant]
     Active Substance: TELMISARTAN
     Indication: PRODUCT USED FOR UNKNOWN INDICATION
     Dosage: 40 MG,
     Route: 048
  7. UNASYN [Concomitant]
     Active Substance: AMPICILLIN SODIUM\SULBACTAM SODIUM
     Indication: PRODUCT USED FOR UNKNOWN INDICATION
     Dosage: 6 G,
     Route: 051
     Dates: start: 20110602, end: 20110613
  8. CALBLOCK [Concomitant]
     Active Substance: AZELNIDIPINE
     Indication: PRODUCT USED FOR UNKNOWN INDICATION
     Dosage: 16 MG,
     Route: 048
  9. REVOLADE TAB [Suspect]
     Active Substance: ELTROMBOPAG
     Dosage: 37.5 MG,
     Route: 048
     Dates: start: 20110623, end: 20110706
  10. NEODOPASTON [Concomitant]
     Active Substance: CARBIDOPA\LEVODOPA
     Indication: PRODUCT USED FOR UNKNOWN INDICATION
     Dosage: 300 MG,
     Route: 048
  11. INDERAL [Concomitant]
     Active Substance: PROPRANOLOL HYDROCHLORIDE
     Indication: PRODUCT USED FOR UNKNOWN INDICATION
     Dosage: 30 MG,
     Route: 048
  12. TAKEPRON [Concomitant]
     Active Substance: LANSOPRAZOLE
     Indication: PRODUCT USED FOR UNKNOWN INDICATION
     Dosage: 30 MG,
     Route: 048
  13. REVOLADE TAB [Suspect]
     Active Substance: ELTROMBOPAG
     Dosage: 50 MG,
     Route: 048
     Dates: start: 20110707, end: 20110926

REACTIONS (9)
  - Pneumonia aspiration [Unknown]
  - Subdural haematoma [Fatal]
  - Haemorrhagic infarction [Fatal]
  - Asthenia [Fatal]
  - Akinesia [Unknown]
  - Cerebral infarction [Fatal]
  - Cerebral infarction [Recovered/Resolved with Sequelae]
  - Communication disorder [Unknown]
  - Nutritional condition abnormal [Unknown]

NARRATIVE: CASE EVENT DATE: 20110705
